FAERS Safety Report 18257731 (Version 1)
Quarter: 2020Q3

REPORT INFORMATION
  Report Type: Spontaneous
  Country: GB (occurrence: GB)
  Receive Date: 20200911
  Receipt Date: 20200911
  Transmission Date: 20201103
  Serious: Yes (Other)
  Sender: FDA-Public Use
  Company Number: GB-PFIZER INC-2020349044

PATIENT
  Age: 26 Year
  Sex: Female
  Weight: 73 kg

DRUGS (3)
  1. CLENIL MODULITE [Concomitant]
     Active Substance: BECLOMETHASONE DIPROPIONATE
     Dosage: UNK
  2. DOXYCYCLINE MONOHYDRATE [Suspect]
     Active Substance: DOXYCYCLINE
     Indication: LYME DISEASE
     Dosage: 2 DF, 1X/DAY
     Route: 048
     Dates: start: 20200813
  3. NUVARING [Concomitant]
     Active Substance: ETHINYL ESTRADIOL\ETONOGESTREL
     Dosage: UNK

REACTIONS (3)
  - Flatulence [Not Recovered/Not Resolved]
  - Diarrhoea [Not Recovered/Not Resolved]
  - Nausea [Not Recovered/Not Resolved]

NARRATIVE: CASE EVENT DATE: 20200814
